FAERS Safety Report 20955853 (Version 1)
Quarter: 2022Q2

REPORT INFORMATION
  Report Type: Report from Study
  Country: US (occurrence: None)
  Receive Date: 20220614
  Receipt Date: 20220614
  Transmission Date: 20220721
  Serious: Yes (Other)
  Sender: FDA-Public Use
  Company Number: 2022A214357

PATIENT
  Age: 61 Year
  Sex: Male
  Weight: 60.8 kg

DRUGS (1)
  1. LYNPARZA [Suspect]
     Active Substance: OLAPARIB
     Indication: Metastasis
     Route: 048
     Dates: start: 20220415

REACTIONS (4)
  - Blister [Unknown]
  - Nausea [Unknown]
  - Fatigue [Unknown]
  - Hypoaesthesia [Unknown]
